FAERS Safety Report 14419392 (Version 1)
Quarter: 2018Q1

REPORT INFORMATION
  Report Type: Spontaneous
  Country: DK (occurrence: DK)
  Receive Date: 20180122
  Receipt Date: 20180122
  Transmission Date: 20180509
  Serious: Yes (Other)
  Sender: FDA-Public Use
  Company Number: DK-MYLANLABS-2018M1005641

PATIENT
  Age: 28 Year
  Sex: Female

DRUGS (2)
  1. LEPONEX [Suspect]
     Active Substance: CLOZAPINE
     Indication: SCHIZOPHRENIA
     Dosage: UNK
     Route: 048
     Dates: start: 201710, end: 201712
  2. ZYPREXA [Suspect]
     Active Substance: OLANZAPINE
     Indication: SCHIZOPHRENIA
     Dosage: 10 MG, QD
     Route: 030
     Dates: start: 201712

REACTIONS (3)
  - Drug ineffective [Unknown]
  - Schizophrenia [Not Recovered/Not Resolved]
  - Antipsychotic drug level increased [Unknown]

NARRATIVE: CASE EVENT DATE: 2017
